FAERS Safety Report 7456571-4 (Version None)
Quarter: 2011Q2

REPORT INFORMATION
  Report Type: 
  Country: None (occurrence: None)
  Receive Date: 20110503
  Receipt Date: 20110427
  Transmission Date: 20111010
  Serious: No
  Sender: FDA-Public Use
  Company Number: US-B.I. PHARMACEUTICALS,INC./RIDGEFIELD-2011-BP-11969BP

PATIENT
  Age: 53 Year
  Sex: Female

DRUGS (1)
  1. MIRAPEX [Suspect]
     Dates: start: 19970901

REACTIONS (4)
  - OBSESSIVE-COMPULSIVE DISORDER [None]
  - PAIN [None]
  - PATHOLOGICAL GAMBLING [None]
  - EMOTIONAL DISTRESS [None]
